FAERS Safety Report 21688244 (Version 1)
Quarter: 2022Q4

REPORT INFORMATION
  Report Type: Spontaneous
  Country: US (occurrence: US)
  Receive Date: 20221206
  Receipt Date: 20221206
  Transmission Date: 20230113
  Serious: Yes (Hospitalization)
  Sender: FDA-Public Use
  Company Number: US-PFIZER INC-202201343022

PATIENT
  Age: 3 Year
  Sex: Female
  Weight: 17.69 kg

DRUGS (1)
  1. GENOTROPIN [Suspect]
     Active Substance: SOMATROPIN
     Indication: Turner^s syndrome
     Dosage: 0.5 MG (BUTT CHEEKS AND THIGHS)
     Dates: start: 202103

REACTIONS (5)
  - Gastroenteritis viral [Unknown]
  - Blood glucose decreased [Unknown]
  - Blood growth hormone increased [Unknown]
  - Device use issue [Unknown]
  - Drug dose omission by device [Unknown]
